FAERS Safety Report 8591601 (Version 2)
Quarter: 2013Q2

REPORT INFORMATION
  Report Type: Spontaneous
  Country: US (occurrence: US)
  Receive Date: 20120601
  Receipt Date: 20130509
  Transmission Date: 20140414
  Serious: Yes (Other)
  Sender: FDA-Public Use
  Company Number: US-ALLERGAN-1207220US

PATIENT
  Age: 83 Year
  Sex: Male

DRUGS (1)
  1. RESTASIS? [Suspect]
     Indication: DRY EYE
     Dosage: UNK
     Route: 047
     Dates: start: 201105

REACTIONS (2)
  - Extranodal marginal zone B-cell lymphoma (MALT type) [Recovering/Resolving]
  - Ophthalmic herpes simplex [Recovering/Resolving]
